FAERS Safety Report 20205821 (Version 4)
Quarter: 2022Q1

REPORT INFORMATION
  Report Type: Spontaneous
  Country: BR (occurrence: BR)
  Receive Date: 20211220
  Receipt Date: 20220315
  Transmission Date: 20220423
  Serious: Yes (Other)
  Sender: FDA-Public Use
  Company Number: BR-NOVARTISPH-NVSC2021BR283938

PATIENT
  Age: 74 Year
  Sex: Male
  Weight: 73 kg

DRUGS (11)
  1. ENTRESTO [Suspect]
     Active Substance: SACUBITRIL\VALSARTAN
     Indication: Infarction
     Dosage: 1 DOSAGE FORM, BID (100 MG) (ENTRESTO 50 MG) (MORNING AND NIGHT)
     Route: 048
     Dates: start: 20210602, end: 202106
  2. ENTRESTO [Suspect]
     Active Substance: SACUBITRIL\VALSARTAN
     Indication: Cardiac failure
     Dosage: 1 DOSAGE FORM, BID (50 MG) (ENTRESTO 100 MG) (MORNING AND NIGHT)
     Route: 048
     Dates: start: 20210718, end: 20211207
  3. ENTRESTO [Suspect]
     Active Substance: SACUBITRIL\VALSARTAN
     Dosage: 1 DOSAGE FORM, BID (50 MG) (ENTRESTO 50 MG) (MORNING AND NIGHT)
     Route: 048
     Dates: start: 20211208
  4. ENTRESTO [Suspect]
     Active Substance: SACUBITRIL\VALSARTAN
     Dosage: 1 DOSAGE FORM, Q12H (50 MG, 24/26 MG)
     Route: 048
     Dates: end: 202202
  5. SIMVASTATIN [Suspect]
     Active Substance: SIMVASTATIN
     Indication: Blood cholesterol
     Dosage: 1 DOSAGE FORM, QD (DAILY AT NIGHT)
     Route: 048
     Dates: start: 202004
  6. CLOPIDOGREL [Suspect]
     Active Substance: CLOPIDOGREL BISULFATE
     Indication: Product used for unknown indication
     Dosage: 1 DOSAGE FORM, QD
     Route: 048
     Dates: start: 202004
  7. VASTAREL [Concomitant]
     Active Substance: TRIMETAZIDINE DIHYDROCHLORIDE
     Indication: Product used for unknown indication
     Dosage: 1 DOSAGE FORM, BID (MORNIG AND NIGHT)
     Route: 048
     Dates: start: 202004
  8. BISOPROLOL FUMARATE [Concomitant]
     Active Substance: BISOPROLOL FUMARATE
     Indication: Product used for unknown indication
     Dosage: 1 DOSAGE FORM, QD (AT NIGHT)
     Route: 048
     Dates: start: 202004
  9. ASPIRIN [Concomitant]
     Active Substance: ASPIRIN
     Indication: Blood disorder
     Dosage: 1 DOSAGE FORM, QD (AFTER LUNCH)
     Route: 048
     Dates: start: 202004
  10. LOSARTAN [Concomitant]
     Active Substance: LOSARTAN
     Indication: Infarction
     Dosage: 1 DOSAGE FORM, QD
     Route: 048
     Dates: start: 202202
  11. LOSARTAN [Concomitant]
     Active Substance: LOSARTAN
     Indication: Cardiac failure

REACTIONS (10)
  - Dyspepsia [Recovered/Resolved]
  - Vomiting [Recovered/Resolved]
  - Retching [Recovered/Resolved]
  - Fall [Recovered/Resolved]
  - Syncope [Recovered/Resolved]
  - Dizziness [Recovered/Resolved]
  - Throat irritation [Recovered/Resolved]
  - Cough [Recovered/Resolved]
  - Product dose omission issue [Unknown]
  - Wrong technique in product usage process [Recovered/Resolved]

NARRATIVE: CASE EVENT DATE: 20210601
